FAERS Safety Report 19364142 (Version 1)
Quarter: 2021Q2

REPORT INFORMATION
  Report Type: Spontaneous
  Country: US (occurrence: US)
  Receive Date: 20210602
  Receipt Date: 20210602
  Transmission Date: 20210717
  Serious: No
  Sender: FDA-Public Use
  Company Number: None

PATIENT
  Age: 34 Year
  Sex: Male

DRUGS (1)
  1. COSENTYX [Suspect]
     Active Substance: SECUKINUMAB
     Dosage: STARTER DOSING OTHER SUBUCUTANEOUS
     Route: 058
     Dates: start: 202106

REACTIONS (1)
  - Haematotoxicity [None]

NARRATIVE: CASE EVENT DATE: 20210602
